FAERS Safety Report 7206884-6 (Version None)
Quarter: 2010Q4

REPORT INFORMATION
  Report Type: 
  Country: None (occurrence: None)
  Receive Date: 20101230
  Receipt Date: 20101230
  Transmission Date: 20110411
  Serious: Yes (Life-Threatening)
  Sender: FDA-Public Use
  Company Number: None

PATIENT
  Sex: Male
  Weight: 90.7194 kg

DRUGS (1)
  1. PENTAZOCINE AND NALOXONE HYDROCHLORIDE [Suspect]
     Indication: PAIN
     Dosage: 1 BY MOUTH 2 A DAY TWICE A DAY
     Route: 048
     Dates: start: 20101208

REACTIONS (5)
  - DROOLING [None]
  - HEART RATE INCREASED [None]
  - RETCHING [None]
  - URINARY RETENTION [None]
  - VISUAL ACUITY REDUCED [None]
